FAERS Safety Report 6125992-4 (Version None)
Quarter: 2009Q1

REPORT INFORMATION
  Report Type: 
  Country: None (occurrence: None)
  Receive Date: 20090320
  Receipt Date: 20090311
  Transmission Date: 20090719
  Serious: Yes (Other)
  Sender: FDA-Public Use
  Company Number: US-ELI_LILLY_AND_COMPANY-US200903002966

PATIENT
  Sex: Female
  Weight: 85.261 kg

DRUGS (7)
  1. BYETTA [Suspect]
     Dosage: 10 UG, 2/D
     Dates: start: 20061228, end: 20090122
  2. METFORMIN HCL [Concomitant]
     Dosage: 500 MG, UNK
     Route: 048
     Dates: start: 20050101
  3. LISINOPRIL [Concomitant]
     Dosage: 10 MG, UNK
     Route: 048
     Dates: start: 20061201
  4. LOVASTATIN [Concomitant]
     Dosage: 10 MG, UNK
     Route: 048
     Dates: start: 20060101
  5. REQUIP [Concomitant]
     Route: 048
     Dates: start: 20060101
  6. POTASSIUM CHLORIDE [Concomitant]
     Dosage: UNK, UNK
     Route: 048
     Dates: start: 20080126
  7. ESTROTEST [Concomitant]
     Route: 048
     Dates: start: 20060101

REACTIONS (3)
  - ABDOMINAL PAIN [None]
  - PANCREATITIS [None]
  - WEIGHT INCREASED [None]
